FAERS Safety Report 4824512-1 (Version None)
Quarter: 2005Q4

REPORT INFORMATION
  Report Type: 
  Country: None (occurrence: None)
  Receive Date: 20051108
  Receipt Date: 20051024
  Transmission Date: 20060501
  Serious: Yes (Hospitalization)
  Sender: FDA-Public Use
  Company Number: EWC051046816

PATIENT
  Age: 83 Year
  Sex: Female
  Weight: 65 kg

DRUGS (12)
  1. TERIPARATIDE [Suspect]
     Indication: OSTEOPOROSIS
     Dosage: 20 UG/1 DAY
     Dates: start: 20050929
  2. CIPROFLOXACIN [Concomitant]
  3. PREDNISOLONE [Concomitant]
  4. LANOXIN [Concomitant]
  5. VERAPAMIL [Concomitant]
  6. SEREVENT [Concomitant]
  7. FUROSEMIDE [Concomitant]
  8. BRICANYL [Concomitant]
  9. ISOSORBIDE MONONITRATE [Concomitant]
  10. IPRATROPIUM BROMIDE [Concomitant]
  11. BELCOMETASONE [Concomitant]
  12. ACENOCOUMAROL [Concomitant]

REACTIONS (2)
  - ARRHYTHMIA [None]
  - DYSPNOEA [None]
